FAERS Safety Report 4278970-4 (Version None)
Quarter: 2004Q1

REPORT INFORMATION
  Report Type: 
  Country: None (occurrence: None)
  Receive Date: 20040126
  Receipt Date: 20031202
  Transmission Date: 20041129
  Serious: Yes (Hospitalization)
  Sender: FDA-Public Use
  Company Number: WAES 0312DEU00035

PATIENT
  Age: 11 Year
  Sex: Female
  Weight: 42 kg

DRUGS (2)
  1. FLUTICASONE PROPIONATE [Concomitant]
     Route: 055
     Dates: start: 20010724
  2. SINGULAIR [Suspect]
     Indication: ASTHMA
     Route: 048
     Dates: start: 20031002, end: 20031101

REACTIONS (2)
  - ANGIONEUROTIC OEDEMA [None]
  - URTICARIA [None]
